FAERS Safety Report 7741968-5 (Version None)
Quarter: 2011Q3

REPORT INFORMATION
  Report Type: 
  Country: None (occurrence: None)
  Receive Date: 20110831
  Receipt Date: 20110816
  Transmission Date: 20111222
  Serious: Yes (Hospitalization, Other)
  Sender: FDA-Public Use
  Company Number: 2011SP038894

PATIENT
  Age: 46 Year
  Sex: Male
  Weight: 134 kg

DRUGS (1)
  1. DECA-DURABOLIN [Suspect]
     Indication: PRODUCT USED FOR UNKNOWN INDICATION

REACTIONS (11)
  - LOW DENSITY LIPOPROTEIN INCREASED [None]
  - PANCREATITIS [None]
  - RESPIRATORY ACIDOSIS [None]
  - CELLULITIS [None]
  - PULMONARY EMBOLISM [None]
  - CHOLECYSTITIS ACUTE [None]
  - CONVULSION [None]
  - ACUTE RESPIRATORY DISTRESS SYNDROME [None]
  - ESCHERICHIA SEPSIS [None]
  - CEREBRAL INFARCTION [None]
  - HYPERTENSION [None]
